FAERS Safety Report 12807417 (Version 1)
Quarter: 2016Q4

REPORT INFORMATION
  Report Type: Spontaneous
  Country: US (occurrence: US)
  Receive Date: 20161004
  Receipt Date: 20161004
  Transmission Date: 20170207
  Serious: Yes (Hospitalization)
  Sender: FDA-Public Use
  Company Number: None

PATIENT
  Age: 78 Year
  Sex: Male
  Weight: 96.4 kg

DRUGS (1)
  1. TEMOZOLOMIDE. [Suspect]
     Active Substance: TEMOZOLOMIDE
     Dates: end: 20160912

REACTIONS (6)
  - Urinary tract infection [None]
  - Troponin increased [None]
  - Hypotension [None]
  - Pulmonary embolism [None]
  - Neurological decompensation [None]
  - Syncope [None]

NARRATIVE: CASE EVENT DATE: 20160926
